FAERS Safety Report 14150709 (Version 1)
Quarter: 2017Q4

REPORT INFORMATION
  Report Type: Report from Study
  Country: NL (occurrence: NL)
  Receive Date: 20171102
  Receipt Date: 20171102
  Transmission Date: 20180321
  Serious: Yes (Hospitalization)
  Sender: FDA-Public Use
  Company Number: NL-UNICHEM LABORATORIES LIMITED-UCM201710-000273

PATIENT
  Age: 75 Year
  Sex: Female

DRUGS (11)
  1. DIGOXIN. [Concomitant]
     Active Substance: DIGOXIN
  2. MONTELUKAST [Suspect]
     Active Substance: MONTELUKAST SODIUM
  3. PHENPROCOUMON [Concomitant]
     Active Substance: PHENPROCOUMON
  4. CALCIUM CARBONATE. [Concomitant]
     Active Substance: CALCIUM CARBONATE
  5. CARVEDILOL. [Concomitant]
     Active Substance: CARVEDILOL
  6. FUROSEMIDE. [Concomitant]
     Active Substance: FUROSEMIDE
  7. RAMIPRIL. [Concomitant]
     Active Substance: RAMIPRIL
  8. TIOTROPIUM [Concomitant]
     Active Substance: TIOTROPIUM
  9. BECLOMETASONE FORMOTEROL [Concomitant]
  10. ISOSORBIDE MONONITRATE. [Concomitant]
     Active Substance: ISOSORBIDE MONONITRATE
  11. OMEPRAZOLE. [Concomitant]
     Active Substance: OMEPRAZOLE

REACTIONS (1)
  - Eosinophilic granulomatosis with polyangiitis [Recovered/Resolved]
